FAERS Safety Report 20827428 (Version 1)
Quarter: 2022Q2

REPORT INFORMATION
  Report Type: Spontaneous
  Country: DK (occurrence: DK)
  Receive Date: 20220513
  Receipt Date: 20220513
  Transmission Date: 20220720
  Serious: Yes (Disabling)
  Sender: FDA-Public Use
  Company Number: None

PATIENT
  Age: 67 Year
  Sex: Female

DRUGS (1)
  1. CISPLATIN [Suspect]
     Active Substance: CISPLATIN
     Indication: Cervix carcinoma
     Dosage: STRENGTH: UNKNOWN?DOSAGE: UNKNOWN
     Dates: start: 201905, end: 201906

REACTIONS (11)
  - Peripheral swelling [Unknown]
  - Neuropathy peripheral [Unknown]
  - Back pain [Unknown]
  - Pain in extremity [Unknown]
  - Hypoaesthesia [Unknown]
  - Muscular weakness [Unknown]
  - Pain in extremity [Unknown]
  - Lymphoedema [Unknown]
  - Peroneal nerve palsy [Unknown]
  - Sensory disturbance [Unknown]
  - Limb discomfort [Unknown]

NARRATIVE: CASE EVENT DATE: 20190901
